FAERS Safety Report 4606387-9 (Version None)
Quarter: 2005Q2

REPORT INFORMATION
  Report Type: 
  Country: None (occurrence: None)
  Receive Date: 20050303
  Receipt Date: 20041105
  Transmission Date: 20051028
  Serious: No
  Sender: FDA-Public Use
  Company Number: 200420535BWH

PATIENT
  Age: 64 Year
  Sex: Male
  Weight: 98.8842 kg

DRUGS (3)
  1. LEVITRA [Suspect]
     Indication: ERECTILE DYSFUNCTION
     Dosage: 10 MG, PRN, ORAL
     Route: 048
     Dates: start: 20040728
  2. ZETIA [Concomitant]
  3. DIOVAN [Concomitant]

REACTIONS (1)
  - ERECTILE DYSFUNCTION [None]
